FAERS Safety Report 14974956 (Version 2)
Quarter: 2018Q3

REPORT INFORMATION
  Report Type: Spontaneous
  Country: SI (occurrence: SI)
  Receive Date: 20180605
  Receipt Date: 20180705
  Transmission Date: 20181010
  Serious: Yes (Hospitalization, Other)
  Sender: FDA-Public Use
  Company Number: SI-JNJFOC-20180541454

PATIENT
  Age: 43 Year
  Sex: Male

DRUGS (4)
  1. LEKOPTIN [Concomitant]
     Active Substance: VERAPAMIL HYDROCHLORIDE
     Indication: MITRAL VALVE DISEASE MIXED
     Route: 065
     Dates: start: 2011
  2. STELARA [Suspect]
     Active Substance: USTEKINUMAB
     Indication: PSORIASIS
     Route: 058
     Dates: start: 201210
  3. LANITOP [Concomitant]
     Active Substance: METILDIGOXIN
     Indication: MITRAL VALVE DISEASE MIXED
     Route: 065
     Dates: start: 2011
  4. EDEMID [Concomitant]
     Active Substance: FUROSEMIDE
     Indication: MITRAL VALVE DISEASE MIXED
     Route: 065
     Dates: start: 2011

REACTIONS (4)
  - Pulmonary oedema [Recovered/Resolved]
  - Surgery [Unknown]
  - Nasopharyngitis [Unknown]
  - Atrial fibrillation [Unknown]

NARRATIVE: CASE EVENT DATE: 20180430
